FAERS Safety Report 8462508-1 (Version None)
Quarter: 2012Q2

REPORT INFORMATION
  Report Type: 
  Country: None (occurrence: None)
  Receive Date: 20120625
  Receipt Date: 20120611
  Transmission Date: 20120825
  Serious: Yes (Hospitalization)
  Sender: FDA-Public Use
  Company Number: ES-MYLANLABS-2012S1012071

PATIENT
  Age: 12 Year
  Sex: Female

DRUGS (1)
  1. DOXYCYCLINE [Suspect]
     Indication: BORRELIA INFECTION
     Route: 042

REACTIONS (1)
  - JARISCH-HERXHEIMER REACTION [None]
